FAERS Safety Report 5021374-7 (Version None)
Quarter: 2006Q2

REPORT INFORMATION
  Report Type: 
  Country: None (occurrence: None)
  Receive Date: 20060605
  Receipt Date: 20060525
  Transmission Date: 20061013
  Serious: Yes (Other)
  Sender: FDA-Public Use
  Company Number: 2004029622

PATIENT
  Age: 52 Year
  Sex: Male
  Weight: 83.4619 kg

DRUGS (13)
  1. DILANTIN KAPSEAL [Suspect]
     Indication: CONVULSION
     Dosage: 300 MG (1D), ORAL
     Route: 048
     Dates: start: 19880101
  2. PHENYTOIN [Suspect]
     Indication: EPILEPSY
     Dosage: 500 MG (1 D)
     Dates: start: 20030801
  3. RITALIN [Suspect]
     Indication: MEMORY IMPAIRMENT
     Dosage: ORAL
     Route: 048
  4. NEURONTIN [Concomitant]
  5. KLONOPIN [Concomitant]
  6. BUSPAR [Concomitant]
  7. FLOMAX ^BOEHRINGER LINGELHEIM^ (TAMSULOSIN HYDROCHLORIDE) [Concomitant]
  8. VASOTEC [Concomitant]
  9. YOHIMBINE (YOHIMBINE) [Concomitant]
  10. FIORICET [Concomitant]
  11. ARICEPT [Concomitant]
  12. LOMOTIL [Concomitant]
  13. VIOXX [Concomitant]

REACTIONS (12)
  - CONVULSION [None]
  - DEPRESSION [None]
  - DRUG EFFECT DECREASED [None]
  - DRUG LEVEL DECREASED [None]
  - DRUG LEVEL INCREASED [None]
  - ELECTROENCEPHALOGRAM ABNORMAL [None]
  - FATIGUE [None]
  - MEMORY IMPAIRMENT [None]
  - NERVOUSNESS [None]
  - POST GASTRIC SURGERY SYNDROME [None]
  - THERAPEUTIC RESPONSE UNEXPECTED WITH DRUG SUBSTITUTION [None]
  - TREATMENT NONCOMPLIANCE [None]
